FAERS Safety Report 6618318-0 (Version None)
Quarter: 2010Q1

REPORT INFORMATION
  Report Type: 
  Country: None (occurrence: None)
  Receive Date: 20100223
  Receipt Date: 20100115
  Transmission Date: 20100710
  Serious: No
  Sender: FDA-Public Use
  Company Number: 8055111

PATIENT
  Sex: Male

DRUGS (3)
  1. CIMZIA [Suspect]
     Indication: CROHN'S DISEASE
     Dosage: 400 MG ONCE MONTHLY SUBCUTANEOUS
     Route: 058
     Dates: start: 20090622
  2. CIMZIA [Suspect]
     Indication: CROHN'S DISEASE
     Dosage: 400 MG ONCE MONTHLY SUBCUTANEOUS
     Route: 058
     Dates: start: 20090622
  3. CIMZIA [Suspect]

REACTIONS (3)
  - ABDOMINAL PAIN [None]
  - HAEMORRHAGE [None]
  - RECTAL HAEMORRHAGE [None]
